FAERS Safety Report 17614202 (Version 1)
Quarter: 2020Q2

REPORT INFORMATION
  Report Type: Spontaneous
  Country: NL (occurrence: NL)
  Receive Date: 20200402
  Receipt Date: 20200402
  Transmission Date: 20200713
  Serious: Yes (Hospitalization)
  Sender: FDA-Public Use
  Company Number: NL-ROCHE-2575334

PATIENT
  Age: 61 Year
  Sex: Male

DRUGS (4)
  1. HERCEPTIN [Suspect]
     Active Substance: TRASTUZUMAB
     Indication: METASTATIC GASTRIC CANCER
     Route: 041
     Dates: start: 20190919
  2. OXALIPLATINE [Suspect]
     Active Substance: OXALIPLATIN
     Indication: METASTATIC GASTRIC CANCER
     Dosage: STRENGTH: 1 MG/MG (MILLIGRAM PER MILLIGRAM)
     Route: 041
     Dates: start: 20190919
  3. CAPECITABINE. [Suspect]
     Active Substance: CAPECITABINE
     Indication: METASTATIC GASTRIC CANCER
     Route: 048
     Dates: start: 20190913
  4. CISPLATINE [Suspect]
     Active Substance: CISPLATIN
     Indication: METASTATIC GASTRIC CANCER
     Dosage: STRNGTH:, 1 MG/MG (MILLIGRAM PER MILLIGRAM)
     Route: 041
     Dates: start: 20190919

REACTIONS (1)
  - Toxic leukoencephalopathy [Unknown]

NARRATIVE: CASE EVENT DATE: 20191001
